FAERS Safety Report 7751584-7 (Version None)
Quarter: 2011Q3

REPORT INFORMATION
  Report Type: 
  Country: None (occurrence: None)
  Receive Date: 20110914
  Receipt Date: 20110204
  Transmission Date: 20111222
  Serious: Yes (Hospitalization)
  Sender: FDA-Public Use
  Company Number: DE-ABBOTT-08P-062-0461862-00

PATIENT
  Sex: Female

DRUGS (4)
  1. HUMIRA [Suspect]
     Route: 058
     Dates: start: 20080626
  2. CORTISONE ACETATE [Concomitant]
     Indication: CROHN'S DISEASE
  3. BONIVA [Concomitant]
     Indication: OSTEOPOROSIS
  4. HUMIRA [Suspect]
     Indication: CROHN'S DISEASE
     Route: 058
     Dates: start: 20080407, end: 20080605

REACTIONS (5)
  - ILEUS [None]
  - ENTEROSTOMY [None]
  - FISTULA [None]
  - DIARRHOEA [None]
  - SKIN PAPILLOMA [None]
